FAERS Safety Report 13517617 (Version 1)
Quarter: 2017Q2

REPORT INFORMATION
  Report Type: Spontaneous
  Country: US (occurrence: US)
  Receive Date: 20170505
  Receipt Date: 20170505
  Transmission Date: 20170830
  Serious: Yes (Disabling)
  Sender: FDA-Public Use
  Company Number: US-PFIZER INC-2017194182

PATIENT
  Age: 57 Year
  Sex: Female
  Weight: 68 kg

DRUGS (4)
  1. ROBAXIN [Concomitant]
     Active Substance: METHOCARBAMOL
     Indication: INTERVERTEBRAL DISC DEGENERATION
     Dosage: 750 MG, 1X/DAY
  2. ATENOLOL. [Concomitant]
     Active Substance: ATENOLOL
     Indication: HYPERTENSION
     Dosage: 50 MG, 1X/DAY
     Route: 048
  3. GABAPENTIN. [Suspect]
     Active Substance: GABAPENTIN
     Indication: FIBROMYALGIA
     Dosage: 600 MG, 4X/DAY
  4. GABAPENTIN. [Suspect]
     Active Substance: GABAPENTIN
     Indication: NERVE INJURY

REACTIONS (4)
  - Feeling abnormal [Unknown]
  - Depression [Unknown]
  - Loss of personal independence in daily activities [Not Recovered/Not Resolved]
  - Drug ineffective for unapproved indication [Unknown]
